FAERS Safety Report 11012638 (Version 1)
Quarter: 2015Q2

REPORT INFORMATION
  Report Type: Spontaneous
  Country: US (occurrence: None)
  Receive Date: 20150410
  Receipt Date: 20150410
  Transmission Date: 20150821
  Serious: Yes (Other)
  Sender: FDA-Public Use
  Company Number: None

PATIENT
  Age: 26 Year
  Sex: Female

DRUGS (11)
  1. VORICONAZOLE. [Suspect]
     Active Substance: VORICONAZOLE
     Indication: SPINAL CORD INFECTION
     Dosage: INTO A VEIN
     Route: 042
     Dates: start: 20121113, end: 20130517
  2. VORICONAZOLE. [Suspect]
     Active Substance: VORICONAZOLE
     Indication: PRODUCT CONTAMINATION
     Dosage: INTO A VEIN
     Route: 042
     Dates: start: 20121113, end: 20130517
  3. VORICONAZOLE. [Suspect]
     Active Substance: VORICONAZOLE
     Indication: CENTRAL NERVOUS SYSTEM FUNGAL INFECTION
     Dosage: INTO A VEIN
     Route: 042
     Dates: start: 20121113, end: 20130517
  4. SYMBICORT [Concomitant]
     Active Substance: BUDESONIDE\FORMOTEROL FUMARATE DIHYDRATE
  5. VORICONAZOLE. [Suspect]
     Active Substance: VORICONAZOLE
     Indication: PRODUCT COMPOUNDING QUALITY ISSUE
     Dosage: INTO A VEIN
     Route: 042
     Dates: start: 20121113, end: 20130517
  6. MORPHINE [Concomitant]
     Active Substance: MORPHINE
  7. INHALER [Concomitant]
     Active Substance: UNSPECIFIED INGREDIENT
  8. ABUTERAL [Concomitant]
  9. INHALER [Concomitant]
     Active Substance: UNSPECIFIED INGREDIENT
  10. STOOL SOFTNER [Concomitant]
  11. MULTI VITAMIN [Concomitant]
     Active Substance: VITAMINS

REACTIONS (5)
  - Photophobia [None]
  - Visual acuity reduced [None]
  - Visual impairment [None]
  - Diplopia [None]
  - Lacrimation increased [None]

NARRATIVE: CASE EVENT DATE: 20121113
